FAERS Safety Report 18466672 (Version 1)
Quarter: 2020Q4

REPORT INFORMATION
  Report Type: Spontaneous
  Country: US (occurrence: US)
  Receive Date: 20201105
  Receipt Date: 20201105
  Transmission Date: 20210114
  Serious: Yes (Other)
  Sender: FDA-Public Use
  Company Number: US-LUPIN PHARMACEUTICALS INC.-2020-08233

PATIENT
  Age: 51 Year
  Sex: Female

DRUGS (7)
  1. IMMUNE GLOBULIN [Concomitant]
     Indication: THROMBOCYTOPENIA
     Dosage: RECEIVED TWO DOSES OVER DAYS 1 AND 2 (TOTAL OF 2 G/KG BODY WEIGHT), WITH NO EFFECT ON THE PLATELET C
     Route: 065
  2. AZATHIOPRINE. [Concomitant]
     Active Substance: AZATHIOPRINE
     Indication: SYSTEMIC LUPUS ERYTHEMATOSUS
     Dosage: UNK
     Route: 065
  3. HYDROXYCHLOROQUINE [Suspect]
     Active Substance: HYDROXYCHLOROQUINE
     Indication: COVID-19
     Dosage: 300 MILLIGRAM, QD
     Route: 065
  4. WARFARIN [Concomitant]
     Active Substance: WARFARIN
     Indication: ANTIPHOSPHOLIPID SYNDROME
     Dosage: UNK
     Route: 065
  5. PREDNISONE. [Concomitant]
     Active Substance: PREDNISONE
     Indication: THROMBOCYTOPENIA
     Dosage: 60 MILLIGRAM, QD
     Route: 048
  6. BELIMUMAB [Concomitant]
     Active Substance: BELIMUMAB
     Indication: SYSTEMIC LUPUS ERYTHEMATOSUS
     Dosage: UNK
     Route: 065
  7. IMMUNE GLOBULIN [Concomitant]
     Dosage: ON DAY 7, SHE RECEIVED IV IMMUNE-GLOBULIN AT 1 G/KG BODY WEIGHT
     Route: 065

REACTIONS (1)
  - Off label use [Unknown]
